FAERS Safety Report 7257770-7 (Version None)
Quarter: 2011Q1

REPORT INFORMATION
  Report Type: 
  Country: None (occurrence: None)
  Receive Date: 20110129
  Receipt Date: 20100714
  Transmission Date: 20110831
  Serious: No
  Sender: FDA-Public Use
  Company Number: US-ABBOTT-10P-163-0647143-00

PATIENT
  Age: 49 Year
  Sex: Female

DRUGS (5)
  1. HUMIRA [Suspect]
     Indication: PSORIASIS
     Dosage: 160 MG LOADING DOSE THEN 80 MG THE 40 MG EVERY OTHER WEEK
     Dates: start: 20100526
  2. LANTUS [Concomitant]
     Indication: DIABETES MELLITUS
     Dosage: 70 - 80 UNITS
  3. LIALDA [Concomitant]
     Indication: COLITIS ULCERATIVE
  4. AMARYL [Concomitant]
     Indication: DIABETES MELLITUS
  5. PREDNISONE [Concomitant]
     Indication: COLITIS ULCERATIVE

REACTIONS (2)
  - DEVICE MALFUNCTION [None]
  - INJECTION SITE PAIN [None]
